FAERS Safety Report 21727571 (Version 1)
Quarter: 2022Q4

REPORT INFORMATION
  Report Type: Report from Study
  Country: IT (occurrence: IT)
  Receive Date: 20221214
  Receipt Date: 20221214
  Transmission Date: 20230113
  Serious: Yes (Hospitalization)
  Sender: FDA-Public Use
  Company Number: None

PATIENT
  Age: 66 Year
  Sex: Female

DRUGS (5)
  1. AMOXICILLIN [Suspect]
     Active Substance: AMOXICILLIN
     Indication: Dental operation
     Dosage: 2 DOSAGE FORMS DAILY; DOSAGE: 2/DAY?FREQUENCY OF ADMINISTRATION: DAILY
     Dates: start: 20220608, end: 20220614
  2. LEVOTHYROXINE SODIUM [Concomitant]
     Active Substance: LEVOTHYROXINE SODIUM
     Indication: Product used for unknown indication
  3. POLYENOIC OMEGAS (ETHYL ESTERS OF POLYUNSATURATED FATTY ACIDS) [Concomitant]
     Indication: Product used for unknown indication
  4. METFORMIN [Concomitant]
     Active Substance: METFORMIN HYDROCHLORIDE
     Indication: Product used for unknown indication
     Dosage: METFORMINA
  5. ENALAPRIL [Concomitant]
     Active Substance: ENALAPRIL
     Indication: Product used for unknown indication

REACTIONS (2)
  - Pruritus [Recovering/Resolving]
  - Urticaria [Recovering/Resolving]

NARRATIVE: CASE EVENT DATE: 20220614
